FAERS Safety Report 19809731 (Version 1)
Quarter: 2021Q3

REPORT INFORMATION
  Report Type: Report from Study
  Country: US (occurrence: US)
  Receive Date: 20210909
  Receipt Date: 20210909
  Transmission Date: 20211014
  Serious: Yes (Other)
  Sender: FDA-Public Use
  Company Number: US-MYLANLABS-2021M1059830

PATIENT
  Age: 67 Year
  Sex: Male

DRUGS (2)
  1. BUTORPHANOL [Suspect]
     Active Substance: BUTORPHANOL
     Indication: CHOLESTATIC PRURITUS
     Dosage: UNK
     Route: 065
     Dates: start: 201711
  2. URSODEOXYCHOLIC ACID [Suspect]
     Active Substance: URSODIOL
     Indication: PRIMARY BILIARY CHOLANGITIS
     Dosage: UNK
     Route: 065

REACTIONS (5)
  - Sedation [Unknown]
  - Off label use [Unknown]
  - Nausea [Unknown]
  - Drug ineffective [Unknown]
  - Vomiting [Unknown]

NARRATIVE: CASE EVENT DATE: 201711
